FAERS Safety Report 6642799-X (Version None)
Quarter: 2010Q1

REPORT INFORMATION
  Report Type: 
  Country: None (occurrence: None)
  Receive Date: 20100319
  Receipt Date: 20100310
  Transmission Date: 20100710
  Serious: Yes (Other)
  Sender: FDA-Public Use
  Company Number: US-PFIZER INC-2006041672

PATIENT
  Sex: Female
  Weight: 69 kg

DRUGS (6)
  1. LIPITOR [Suspect]
     Indication: BLOOD CHOLESTEROL INCREASED
     Dosage: 10 MG, 1X/DAY
  2. VALSARTAN [Concomitant]
     Dosage: UNK
  3. SYNTHROID [Concomitant]
     Dosage: UNK
  4. PREMARIN [Concomitant]
     Dosage: UNK
  5. ATENOLOL [Concomitant]
     Dosage: UNK
  6. PAROXETINE HYDROCHLORIDE [Concomitant]
     Dosage: UNK

REACTIONS (3)
  - BODY HEIGHT DECREASED [None]
  - DYSPHONIA [None]
  - NASOPHARYNGITIS [None]
